FAERS Safety Report 8342176-X (Version None)
Quarter: 2012Q2

REPORT INFORMATION
  Report Type: 
  Country: None (occurrence: None)
  Receive Date: 20120507
  Receipt Date: 20120420
  Transmission Date: 20120825
  Serious: Yes (Hospitalization, Other)
  Sender: FDA-Public Use
  Company Number: PHHY2011JP61708

PATIENT
  Age: 48 Year
  Sex: Male

DRUGS (10)
  1. NAFAMOSTAT MESILATE [Concomitant]
     Dosage: UNK UKN, UNK
  2. SANDIMMUNE [Concomitant]
     Indication: RENAL TRANSPLANT
     Dosage: UNK UKN, UNK
     Route: 042
     Dates: start: 20091129
  3. NEORAL [Suspect]
     Indication: RENAL TRANSPLANT
     Dosage: 400 MG, UNK
     Route: 048
     Dates: start: 20091207
  4. TACROLIMUS [Concomitant]
     Dosage: UNK UKN, UNK
  5. STEROIDS NOS [Concomitant]
     Dosage: UNK UKN, UNK
  6. NEORAL [Suspect]
     Dosage: 350 MG, UNK
     Route: 048
  7. MYCOPHENOLATE MOFETIL [Concomitant]
     Dosage: UNK UKN, UNK
  8. BASILIXIMAB [Concomitant]
     Dosage: UNK UKN, UNK
  9. ASPIRIN [Concomitant]
     Dosage: UNK UKN, UNK
  10. METHYLPREDNISOLONE [Concomitant]
     Dosage: UNK UKN, UNK

REACTIONS (10)
  - CORONARY ARTERY STENOSIS [None]
  - KIDNEY TRANSPLANT REJECTION [None]
  - NEPHROPATHY TOXIC [None]
  - ANGINA PECTORIS [None]
  - MYOCARDIAL ISCHAEMIA [None]
  - CHEST PAIN [None]
  - RENAL TUBULAR NECROSIS [None]
  - TOXICITY TO VARIOUS AGENTS [None]
  - RENAL DISORDER [None]
  - CORONARY ARTERY RESTENOSIS [None]
